FAERS Safety Report 18566003 (Version 1)
Quarter: 2020Q4

REPORT INFORMATION
  Report Type: Spontaneous
  Country: FR (occurrence: FR)
  Receive Date: 20201201
  Receipt Date: 20201201
  Transmission Date: 20210114
  Serious: Yes (Hospitalization, Other)
  Sender: FDA-Public Use
  Company Number: FR-MYLANLABS-2020M1097600

PATIENT
  Age: 6 Year
  Sex: Female

DRUGS (1)
  1. PREGABALIN. [Suspect]
     Active Substance: PREGABALIN
     Indication: PRODUCT USED FOR UNKNOWN INDICATION
     Dosage: 600 MG, TOTAL,(31.6 MG/KG).8 DF
     Route: 048

REACTIONS (7)
  - Confusional state [Recovered/Resolved]
  - Somnolence [Recovered/Resolved]
  - Agitation [Recovered/Resolved]
  - Accidental exposure to product [Recovered/Resolved]
  - Hallucination [Recovered/Resolved]
  - Medication error [Unknown]
  - Intentional product misuse [Unknown]
